FAERS Safety Report 6897757-7 (Version None)
Quarter: 2010Q3

REPORT INFORMATION
  Report Type: 
  Country: None (occurrence: None)
  Receive Date: 20100802
  Receipt Date: 20070716
  Transmission Date: 20110219
  Serious: No
  Sender: FDA-Public Use
  Company Number: US-PFIZER INC-2007060133

PATIENT
  Sex: Male
  Weight: 63.2 kg

DRUGS (6)
  1. LYRICA [Suspect]
     Indication: DIABETIC NEUROPATHY
     Route: 048
     Dates: start: 20070715
  2. LASIX [Concomitant]
  3. THYROID TAB [Concomitant]
  4. DRUG USED IN DIABETES [Concomitant]
  5. PNEUMOCOCCAL VACCINE [Concomitant]
     Dates: start: 20070710, end: 20070710
  6. ALL OTHER THERAPEUTIC PRODUCTS [Concomitant]

REACTIONS (2)
  - BLADDER PAIN [None]
  - URINE FLOW DECREASED [None]
